FAERS Safety Report 12979123 (Version 6)
Quarter: 2017Q1

REPORT INFORMATION
  Report Type: Spontaneous
  Country: CA (occurrence: CA)
  Receive Date: 20161128
  Receipt Date: 20170315
  Transmission Date: 20170428
  Serious: Yes (Other)
  Sender: FDA-Public Use
  Company Number: CA-GLAXOSMITHKLINE-CA2016GSK154866

PATIENT
  Age: 44 Year
  Sex: Male

DRUGS (5)
  1. NUCALA [Suspect]
     Active Substance: MEPOLIZUMAB
     Indication: ASTHMA
     Dosage: 100 MG, Z
     Route: 058
     Dates: start: 20160912
  2. NUCALA [Suspect]
     Active Substance: MEPOLIZUMAB
     Dosage: 100 MG, AT ONE MONTH
     Route: 058
     Dates: start: 20170308
  3. NUCALA [Suspect]
     Active Substance: MEPOLIZUMAB
     Dosage: UNK
     Dates: start: 20161214
  4. NUCALA [Suspect]
     Active Substance: MEPOLIZUMAB
     Dosage: UNK
     Dates: start: 20170110
  5. NUCALA [Suspect]
     Active Substance: MEPOLIZUMAB
     Dosage: 100 MG, AT ONE MONTH
     Route: 058
     Dates: start: 20170208

REACTIONS (9)
  - Headache [Recovered/Resolved]
  - Rhinitis [Unknown]
  - Asthma [Unknown]
  - Nasopharyngitis [Unknown]
  - Biliary colic [Unknown]
  - Sinusitis [Unknown]
  - Nephrolithiasis [Unknown]
  - Blood pressure increased [Not Recovered/Not Resolved]
  - Pain [Unknown]

NARRATIVE: CASE EVENT DATE: 201611
